FAERS Safety Report 12162174 (Version 1)
Quarter: 2016Q1

REPORT INFORMATION
  Report Type: Spontaneous
  Country: US (occurrence: None)
  Receive Date: 20160307
  Receipt Date: 20160307
  Transmission Date: 20160526
  Serious: Yes (Other)
  Sender: FDA-Public Use
  Company Number: None

PATIENT
  Age: 37 Year
  Sex: Female
  Weight: 68.04 kg

DRUGS (1)
  1. BELSOMRA [Suspect]
     Active Substance: SUVOREXANT
     Indication: INSOMNIA
     Dosage: ONCE A NIGHT
     Route: 048
     Dates: start: 20160301, end: 20160304

REACTIONS (2)
  - Insomnia [None]
  - Abnormal dreams [None]

NARRATIVE: CASE EVENT DATE: 20160303
